FAERS Safety Report 8362120-9 (Version None)
Quarter: 2012Q2

REPORT INFORMATION
  Report Type: 
  Country: None (occurrence: None)
  Receive Date: 20120515
  Receipt Date: 20110920
  Transmission Date: 20120825
  Serious: Yes (Other)
  Sender: FDA-Public Use
  Company Number: PHHY2011US116508

PATIENT

DRUGS (5)
  1. RITUXIMAB [Concomitant]
  2. METHYLPREDNISOLONE [Concomitant]
     Indication: CHRONIC GRAFT VERSUS HOST DISEASE
     Dosage: 2 MG/KG, UNK
  3. CYCLOSPORINE [Suspect]
     Indication: CHRONIC GRAFT VERSUS HOST DISEASE
  4. SIROLIMUS [Concomitant]
     Indication: CHRONIC GRAFT VERSUS HOST DISEASE
  5. MYCOPHENOLATE MOFETIL [Concomitant]
     Indication: CHRONIC GRAFT VERSUS HOST DISEASE

REACTIONS (4)
  - SCOLIOSIS [None]
  - ASTHENIA [None]
  - DYSPHAGIA [None]
  - RESPIRATORY FAILURE [None]
